FAERS Safety Report 9102965 (Version 1)
Quarter: 2013Q1

REPORT INFORMATION
  Report Type: Spontaneous
  Country: US (occurrence: US)
  Receive Date: 20130219
  Receipt Date: 20130219
  Transmission Date: 20140127
  Serious: No
  Sender: FDA-Public Use
  Company Number: US-ASTRAZENECA-2013SE09874

PATIENT
  Age: 81 Year
  Sex: Female
  Weight: 51.3 kg

DRUGS (6)
  1. SYMBICORT [Suspect]
     Indication: PULMONARY FIBROSIS
     Dosage: 80/4.5 MCG TWO PUFFS BID
     Route: 055
     Dates: start: 20130108, end: 20130124
  2. SYMBICORT [Suspect]
     Indication: PULMONARY FIBROSIS
     Dosage: 160/4.5 MCG TWO PUFFS BID
     Route: 055
     Dates: start: 20130125
  3. DILANTIN [Concomitant]
  4. DIURETIC [Concomitant]
     Indication: OEDEMA
  5. BLOOD PRESSURE MEDICATION [Concomitant]
  6. OXYGEN [Concomitant]

REACTIONS (5)
  - Abdominal pain upper [Not Recovered/Not Resolved]
  - Condition aggravated [Not Recovered/Not Resolved]
  - Diarrhoea [Not Recovered/Not Resolved]
  - Aphagia [Not Recovered/Not Resolved]
  - Off label use [Unknown]
